FAERS Safety Report 7788709-3 (Version None)
Quarter: 2011Q3

REPORT INFORMATION
  Report Type: 
  Country: None (occurrence: None)
  Receive Date: 20110930
  Receipt Date: 20110922
  Transmission Date: 20111222
  Serious: Yes (Other)
  Sender: FDA-Public Use
  Company Number: CH-UCBSA-041966

PATIENT
  Age: 66 Year
  Sex: Female

DRUGS (4)
  1. KEPPRA [Suspect]
     Indication: EPILEPSY
     Dosage: TOTAL DAILY DOSE: 2000 MG
     Route: 048
     Dates: start: 20110708, end: 20110805
  2. VALPROATE SODIUM [Suspect]
     Indication: EPILEPSY
     Dosage: TOTAL DAILY DOSE: 1200 MG
     Route: 048
     Dates: start: 20110301
  3. ENOXAPARIN SODIUM [Suspect]
     Indication: THROMBOSIS PROPHYLAXIS
     Route: 058
     Dates: start: 20110722, end: 20110729
  4. ACETAMINOPHEN [Concomitant]
     Indication: PAIN
     Dosage: TOTAL DAILY DOSE: 3 G
     Route: 048
     Dates: start: 20110701

REACTIONS (1)
  - THROMBOCYTOPENIA [None]
